FAERS Safety Report 9387649 (Version 4)
Quarter: 2014Q2

REPORT INFORMATION
  Report Type: Report from Study
  Country: GB (occurrence: GB)
  Receive Date: 20130708
  Receipt Date: 20140423
  Transmission Date: 20141212
  Serious: Yes (Hospitalization, Other)
  Sender: FDA-Public Use
  Company Number: GB-PFIZER INC-2013196660

PATIENT
  Age: 32 Month
  Sex: Female

DRUGS (48)
  1. DOXORUBICIN HCL [Suspect]
     Indication: SARCOMA METASTATIC
     Dosage: 30 MG, UNK
     Route: 042
     Dates: start: 20110712
  2. DOXORUBICIN HCL [Suspect]
     Dosage: 16 MG, CYCLIC, ON DAYS 1 AND 2
     Route: 042
     Dates: start: 20110809
  3. CYCLOPHOSPHAMIDE [Suspect]
     Indication: RHABDOMYOSARCOMA
     Dosage: UNK
     Route: 048
     Dates: start: 20120301
  4. CYCLOPHOSPHAMIDE [Suspect]
     Dosage: UNK
     Route: 048
     Dates: start: 20120511
  5. CYCLOPHOSPHAMIDE [Suspect]
     Dosage: UNK
     Route: 048
     Dates: start: 20120623
  6. CYCLOPHOSPHAMIDE [Suspect]
     Dosage: UNK
     Route: 048
     Dates: start: 20120907
  7. LYOVAC-COSMEGEN [Suspect]
     Indication: SARCOMA METASTATIC
     Dosage: 0.8 MG, CYCLIC, 1X/DAY
     Route: 050
     Dates: start: 20110712
  8. LYOVAC-COSMEGEN [Suspect]
     Dosage: 0.8 MG (1.5 MG/M2), CYCLIC
     Dates: start: 20110808, end: 20110823
  9. LYOVAC-COSMEGEN [Suspect]
     Dosage: UNK
     Dates: end: 20110830
  10. BEVACIZUMAB [Suspect]
     Indication: SARCOMA METASTATIC
     Dosage: 65 MG (5MG/KG), CYCLIC, ON DAY 1
     Route: 050
     Dates: start: 20110712
  11. BEVACIZUMAB [Suspect]
     Dosage: 85 MG, CYCLIC, ON DAY 1
     Dates: start: 20110808
  12. IFOSFAMIDE [Suspect]
     Indication: SARCOMA METASTATIC
     Dosage: UNK
     Route: 042
     Dates: start: 20110712
  13. IFOSFAMIDE [Suspect]
     Dosage: 1.59 G (3G/M2), CYCLIC, ON DAY 1 AND 2
     Dates: start: 20110809
  14. VINCRISTINE SULFATE [Suspect]
     Indication: SARCOMA METASTATIC
     Dosage: ON DAYS 1, 8 AND 15 OF CYCLE
     Route: 050
     Dates: start: 20110712
  15. VINCRISTINE SULFATE [Suspect]
     Dosage: 0.8 MG (1.5 MG/M2) ON DAYS 1, 8 AND 15 OF CYCLE
     Dates: start: 20110809, end: 20111123
  16. MESNA [Suspect]
     Indication: SARCOMA METASTATIC
     Dosage: 4.41 G, 1X/DAY
     Route: 042
     Dates: start: 20110712
  17. MESNA [Suspect]
     Dosage: 1.9 G (3600 MG/M2) ON DAYS 1 AND 2 OF CYCLE
     Route: 050
     Dates: start: 20110809
  18. MESNA [Suspect]
     Dosage: 4.41 G, 1X/DAY
     Dates: start: 20110921
  19. VINORELBINE [Suspect]
     Indication: RHABDOMYOSARCOMA
     Dosage: 11 MG, 1X/DAY
     Route: 050
     Dates: start: 20120301
  20. VINORELBINE [Suspect]
     Dosage: UNK
     Dates: start: 20120508
  21. VINORELBINE [Suspect]
     Dosage: UNK
     Dates: start: 20120829
  22. PARACETAMOL [Concomitant]
     Dosage: 220 MG, AS NEEDED
     Route: 048
     Dates: start: 20110817
  23. ONDANSETRON [Concomitant]
     Dosage: 3 MG, AS NEEDED
     Route: 048
     Dates: start: 20110817
  24. ONDANSETRON [Concomitant]
     Dosage: 2.8 MG, UNK
     Route: 048
     Dates: start: 20110901, end: 20110907
  25. ONDANSETRON [Concomitant]
     Dosage: 5 MG, UNK
     Route: 048
     Dates: start: 20110927
  26. ONDANSETRON [Concomitant]
     Dosage: 3 MG, 3X/DAY
     Dates: start: 20111125, end: 20111129
  27. ONDANSETRON [Concomitant]
     Dosage: 9 MG, UNK
     Dates: start: 20110712
  28. ONDANSETRON [Concomitant]
     Dosage: 6 MG, UNK
     Dates: start: 20120915
  29. FLUCONAZOLE [Concomitant]
     Dosage: UNK
     Route: 042
  30. LEVOMEPROMAZINE [Concomitant]
     Dosage: 2.6 MG, UNK
     Route: 050
     Dates: start: 20110713
  31. LEVOMEPROMAZINE [Concomitant]
     Dosage: 2.4 MG, 2X/DAY
     Dates: start: 20111125, end: 20111127
  32. CO-TRIMOXAZOLE [Concomitant]
     Dosage: 240 MG, UNK
     Route: 048
     Dates: start: 20110716
  33. DOCUSATE [Concomitant]
     Dosage: 37.5 MG, 3X/DAY
     Route: 048
     Dates: start: 20110714
  34. DOCUSATE [Concomitant]
     Dosage: 25 MG, 3X/DAY
     Dates: start: 20111125
  35. DOCUSATE [Concomitant]
     Dosage: 12.5 MG, UNK
     Dates: start: 20111230
  36. GENTAMICIN [Concomitant]
     Dosage: 83 MG, 1X/DAY
     Route: 050
     Dates: start: 20110817, end: 20110824
  37. PIPERACILLIN/TAZOBACTAM [Concomitant]
     Dosage: 1070 MG, 4X/DAY
     Route: 050
     Dates: start: 20110817, end: 20110824
  38. MORPHINE SULFATE [Concomitant]
     Dosage: UNK
     Route: 048
     Dates: start: 20110817
  39. MOVICOL [Concomitant]
     Dosage: TDD: 2
     Dates: start: 20110820
  40. MOVICOL [Concomitant]
     Dosage: TDD: 1
     Dates: start: 20110901, end: 20110907
  41. MOVICOL [Concomitant]
     Dosage: TDD: 2
     Dates: start: 20120326
  42. GRANULOCYTE COLONY-STIMULATING FACTOR NOS [Concomitant]
     Dosage: UNK UMOL, 1X/DAY
     Route: 050
     Dates: start: 20110903
  43. GRANULOCYTE COLONY-STIMULATING FACTOR NOS [Concomitant]
     Dosage: 60 UMOL, 1X/DAY
     Route: 050
     Dates: start: 20110924
  44. DIHYDROCODEINE [Concomitant]
     Dosage: 5 MG, UNK
     Route: 048
     Dates: start: 20110928
  45. CEFIXIME [Concomitant]
     Dosage: 100 MG, UNK
     Dates: start: 20120417
  46. TEMOZOLOMIDE [Concomitant]
     Dosage: 93 MG, UNK
     Dates: start: 20120915
  47. IRINOTECAN [Concomitant]
     Dosage: 3 MG, UNK
     Dates: start: 20120915
  48. FILGRASTIM [Concomitant]
     Dosage: 60 MMOL, 1X/DAY
     Route: 042
     Dates: start: 20110903

REACTIONS (8)
  - Epistaxis [Recovered/Resolved]
  - Mucosal inflammation [Recovered/Resolved]
  - Febrile neutropenia [Recovered/Resolved]
  - Febrile neutropenia [Recovered/Resolved]
  - Candida test positive [Recovered/Resolved]
  - Epistaxis [Recovered/Resolved]
  - Epistaxis [Recovered/Resolved]
  - Epistaxis [Recovered/Resolved]
